FAERS Safety Report 22304416 (Version 1)
Quarter: 2023Q2

REPORT INFORMATION
  Report Type: Spontaneous
  Country: US (occurrence: None)
  Receive Date: 20230509
  Receipt Date: 20230509
  Transmission Date: 20230722
  Serious: No
  Sender: FDA-Public Use
  Company Number: None

PATIENT
  Sex: Female
  Weight: 89.4 kg

DRUGS (6)
  1. LENVIMA [Suspect]
     Active Substance: LENVATINIB
     Indication: Endometrial cancer
     Dosage: FREQUENCY : DAILY;?
     Route: 048
     Dates: start: 20230420
  2. KEYTRUDA [Concomitant]
     Active Substance: PEMBROLIZUMAB
  3. DULOXETINE [Concomitant]
     Active Substance: DULOXETINE
  4. ENALAPRIL [Concomitant]
     Active Substance: ENALAPRIL
  5. LEVOTHYROXINE [Concomitant]
     Active Substance: LEVOTHYROXINE
  6. LORATADINE [Concomitant]
     Active Substance: LORATADINE

REACTIONS (4)
  - Cough [None]
  - Hyperhidrosis [None]
  - Fatigue [None]
  - Blood thyroid stimulating hormone increased [None]
